FAERS Safety Report 10978002 (Version 3)
Quarter: 2015Q2

REPORT INFORMATION
  Report Type: Spontaneous
  Country: SK (occurrence: SK)
  Receive Date: 20150402
  Receipt Date: 20150420
  Transmission Date: 20150821
  Serious: Yes (Death)
  Sender: FDA-Public Use
  Company Number: SK-SA-2015SA041259

PATIENT
  Sex: Male

DRUGS (5)
  1. NEULASTA [Concomitant]
     Active Substance: PEGFILGRASTIM
  2. NEULASTA [Concomitant]
     Active Substance: PEGFILGRASTIM
  3. ZOMETA [Concomitant]
     Active Substance: ZOLEDRONIC ACID
  4. JEVTANA [Suspect]
     Active Substance: CABAZITAXEL
     Indication: PROSTATE CANCER
     Route: 042
     Dates: start: 20140609
  5. JEVTANA [Suspect]
     Active Substance: CABAZITAXEL
     Indication: PROSTATE CANCER
     Route: 042
     Dates: start: 20140707

REACTIONS (6)
  - Prostatic specific antigen increased [Unknown]
  - Asthenia [Unknown]
  - Hypotension [Unknown]
  - Vomiting [Unknown]
  - Headache [Unknown]
  - Death [Fatal]

NARRATIVE: CASE EVENT DATE: 2014
